FAERS Safety Report 7372744 (Version 3)
Quarter: 2012Q4

REPORT INFORMATION
  Report Type: 
  Country: US (occurrence: US)
  Receive Date: 20100430
  Receipt Date: 20120917
  Transmission Date: 20130627
  Serious: No
  Sender: FDA-Public Use
  Company Number: US-ASTRAZENECA-2010SE08723

PATIENT
  Age: 70 Year
  Sex: Female

DRUGS (6)
  1. NEXIUM [Suspect]
     Route: 048
  2. ZESTRIL [Suspect]
     Route: 048
  3. CYMBALTA [Concomitant]
  4. SAVELLA [Concomitant]
  5. CELEXA [Concomitant]
  6. AMBIEN [Concomitant]

REACTIONS (10)
  - Gastrooesophageal reflux disease [Unknown]
  - Chest pain [Unknown]
  - Nausea [Unknown]
  - Abdominal pain upper [Unknown]
  - Diarrhoea [Unknown]
  - Flatulence [Unknown]
  - Malaise [Unknown]
  - Abdominal pain upper [Unknown]
  - Drug intolerance [Unknown]
  - Drug dose omission [Unknown]
